FAERS Safety Report 6717134-9 (Version None)
Quarter: 2010Q2

REPORT INFORMATION
  Report Type: 
  Country: None (occurrence: None)
  Receive Date: 20100505
  Receipt Date: 20100426
  Transmission Date: 20101027
  Serious: Yes (Other)
  Sender: FDA-Public Use
  Company Number: 8046541

PATIENT
  Sex: Female

DRUGS (4)
  1. KEPPRA [Suspect]
     Indication: CONVULSION
     Dosage: (1000 MG QD)
     Dates: end: 20090125
  2. KEPPRA [Suspect]
     Indication: EPILEPSY
     Dosage: (1000 MG QD)
     Dates: end: 20090125
  3. FRISIUM (FRISIUM) (NOT SPECIFIED) [Suspect]
     Indication: EPILEPSY
     Dosage: (10 MG QD, DAILY UP TO 15 MG)
     Dates: start: 20090128, end: 20090630
  4. FOLIC ACID [Suspect]
     Indication: PREGNANCY
     Dosage: (5 MG QD)
     Dates: start: 20081201

REACTIONS (3)
  - CAESAREAN SECTION [None]
  - DRUG EXPOSURE DURING PREGNANCY [None]
  - UNINTENDED PREGNANCY [None]
